FAERS Safety Report 4525005-1 (Version None)
Quarter: 2004Q4

REPORT INFORMATION
  Report Type: 
  Country: None (occurrence: None)
  Receive Date: 20041117
  Receipt Date: 20030728
  Transmission Date: 20050328
  Serious: Yes (Other)
  Sender: FDA-Public Use
  Company Number: C2003-1951.01

PATIENT
  Age: 39 Year
  Sex: Male

DRUGS (7)
  1. CLOZAPINE [Suspect]
     Indication: SCHIZOAFFECTIVE DISORDER
     Dosage: 350MG Q HS, THEN 400MG Q HS, ORAL
     Route: 048
     Dates: end: 20030428
  2. CLOZAPINE [Suspect]
     Indication: SCHIZOAFFECTIVE DISORDER
     Dosage: 350MG Q HS, THEN 400MG Q HS, ORAL
     Route: 048
     Dates: start: 20030508
  3. EFFEXOR XR [Concomitant]
  4. QUETIAPINE [Concomitant]
  5. GABAPENTIN [Concomitant]
  6. TRAZODONE HCL [Concomitant]
  7. LORAZEPAM [Concomitant]

REACTIONS (1)
  - LEUKOPENIA [None]
